FAERS Safety Report 13502528 (Version 1)
Quarter: 2017Q2

REPORT INFORMATION
  Report Type: Spontaneous
  Country: US (occurrence: US)
  Receive Date: 20170502
  Receipt Date: 20170502
  Transmission Date: 20170830
  Serious: No
  Sender: FDA-Public Use
  Company Number: US-AUROBINDO-AUR-APU-2016-07756

PATIENT
  Age: 48 Year
  Sex: Female

DRUGS (1)
  1. MINOCYCLINE HYDROCHLORIDE CAPSULES USP 50 MG [Suspect]
     Active Substance: MINOCYCLINE HYDROCHLORIDE
     Indication: DERMATITIS
     Dosage: 4 DF, DAILY, TWO IN THE MORNING AND TWO IN THE EVENING)
     Route: 065
     Dates: start: 20160606

REACTIONS (2)
  - Nausea [Recovered/Resolved]
  - Dizziness [Recovered/Resolved]

NARRATIVE: CASE EVENT DATE: 20160607
